FAERS Safety Report 11002547 (Version 1)
Quarter: 2015Q2

REPORT INFORMATION
  Report Type: Spontaneous
  Country: US (occurrence: US)
  Receive Date: 20150408
  Receipt Date: 20150408
  Transmission Date: 20150821
  Serious: Yes (Death, Hospitalization)
  Sender: FDA-Public Use
  Company Number: US-CUBIST PHARMACEUTICALS, INC.-2015CBST000434

PATIENT

DRUGS (8)
  1. CUBICIN [Suspect]
     Active Substance: DAPTOMYCIN
     Indication: STAPHYLOCOCCAL INFECTION
     Dosage: 10 MG/KG, UNK, (FOLLOWING 1ST AND 2ND DIALYSIS SESSION OF THE WEEK)
     Route: 065
  2. CEFTAROLINE [Concomitant]
     Active Substance: CEFTAROLINE
     Indication: STAPHYLOCOCCAL INFECTION
     Dosage: 500 MG (LOADING DOSE), SINGLE
     Route: 042
  3. CEFTAROLINE [Concomitant]
     Active Substance: CEFTAROLINE
     Indication: STAPHYLOCOCCAL BACTERAEMIA
     Dosage: 400 MG, BID
     Route: 042
  4. CUBICIN [Suspect]
     Active Substance: DAPTOMYCIN
     Indication: STAPHYLOCOCCAL BACTERAEMIA
     Dosage: 12 MG/KG, UNK, (FOLLOWING 3RD DIALYSIS SESSION OF THE WEEK)
     Route: 065
  5. CEFTAROLINE [Concomitant]
     Active Substance: CEFTAROLINE
     Indication: ENDOCARDITIS
  6. CEFTAROLINE [Concomitant]
     Active Substance: CEFTAROLINE
     Indication: OFF LABEL USE
  7. CUBICIN [Suspect]
     Active Substance: DAPTOMYCIN
     Indication: ENDOCARDITIS
  8. CUBICIN [Suspect]
     Active Substance: DAPTOMYCIN
     Indication: OFF LABEL USE

REACTIONS (5)
  - Atrial fibrillation [Unknown]
  - Cardiac failure [Fatal]
  - Off label use [Fatal]
  - Mitral valve incompetence [Unknown]
  - Antimicrobial susceptibility test resistant [Unknown]
